FAERS Safety Report 17223776 (Version 1)
Quarter: 2020Q1

REPORT INFORMATION
  Report Type: Spontaneous
  Country: DE (occurrence: DE)
  Receive Date: 20200102
  Receipt Date: 20200102
  Transmission Date: 20200409
  Serious: Yes (Hospitalization)
  Sender: FDA-Public Use
  Company Number: DE-TEVA-2019-DE-1159999

PATIENT
  Age: 71 Year
  Sex: Male

DRUGS (8)
  1. NITRENDIPIN [Concomitant]
     Active Substance: NITRENDIPINE
     Dosage: 10 MG, IF NECESSARY
  2. DICLOFENAC [Suspect]
     Active Substance: DICLOFENAC
     Dosage: 75 MG, 1-0-1-0
     Route: 065
  3. BISOPROLOL [Concomitant]
     Active Substance: BISOPROLOL
     Dosage: 5 MG, 1-0-1-0
  4. RAMIPRIL. [Concomitant]
     Active Substance: RAMIPRIL
     Dosage: 5 MG, 1-0-1-0
  5. PANTOPRAZOL [Concomitant]
     Active Substance: PANTOPRAZOLE SODIUM
     Dosage: 40 MILLIGRAM DAILY;
  6. MOXONIDIN [Concomitant]
     Active Substance: MOXONIDINE
     Dosage: .3 MILLIGRAM DAILY;
  7. LEVOTHYROXINE SODIUM. [Concomitant]
     Active Substance: LEVOTHYROXINE SODIUM
     Dosage: 50 MICROGRAM DAILY;
  8. HCT [Concomitant]
     Active Substance: HYDROCHLOROTHIAZIDE
     Dosage: 25 MILLIGRAM DAILY;

REACTIONS (2)
  - Haematochezia [Unknown]
  - Syncope [Unknown]
